FAERS Safety Report 14815374 (Version 3)
Quarter: 2018Q2

REPORT INFORMATION
  Report Type: Spontaneous
  Country: US (occurrence: US)
  Receive Date: 20180426
  Receipt Date: 20180612
  Transmission Date: 20180711
  Serious: Yes (Other)
  Sender: FDA-Public Use
  Company Number: US-PFIZER INC-2016546023

PATIENT
  Age: 69 Year
  Sex: Female

DRUGS (20)
  1. PREDNISONE. [Concomitant]
     Active Substance: PREDNISONE
     Dosage: 5 MG, 1X/DAY
     Dates: start: 20161101
  2. MOBIC [Concomitant]
     Active Substance: MELOXICAM
     Dosage: 15 MG, 1X/DAY
     Dates: start: 20161101
  3. PLAQUENIL /00072602/ [Concomitant]
     Active Substance: HYDROXYCHLOROQUINE DIPHOSPHATE
     Dosage: 200 MG, 1X/DAY
     Dates: start: 20161101
  4. OMEPRAZOLE. [Concomitant]
     Active Substance: OMEPRAZOLE
     Dosage: 20 MG, 1X/DAY
     Dates: start: 20161101
  5. LYRICA [Suspect]
     Active Substance: PREGABALIN
     Indication: BACK PAIN
     Dosage: 1 DF, 2X/DAY (1 CAPSULES BY MOUTH 2 TIMES A DAY)
     Route: 048
     Dates: start: 2012
  6. CLARITIN [Concomitant]
     Active Substance: LORATADINE
     Dosage: 1 DF, 2X/DAY (ONE TABLET EVERY 12 HOURS)
     Dates: start: 20161101
  7. FLONASE /00908302/ [Concomitant]
     Active Substance: MOMETASONE FUROATE
     Dosage: 50 UG, DAILY (2 SPRAYS IN EACH NOSTRIL DAILY)
     Route: 045
     Dates: start: 20161101
  8. LYRICA [Suspect]
     Active Substance: PREGABALIN
     Indication: RHEUMATOID ARTHRITIS
     Dosage: 150 MG, UNK
  9. METHADONE [Concomitant]
     Active Substance: METHADONE HYDROCHLORIDE
     Dosage: 5 MG, UNK (1 TABLET EVERY SIX HOURS)
     Dates: start: 20161101
  10. LYRICA [Suspect]
     Active Substance: PREGABALIN
     Indication: SCOLIOSIS
     Dosage: UNK
  11. FOLIC ACID. [Concomitant]
     Active Substance: FOLIC ACID
     Dosage: 1 MG, 1X/DAY
     Dates: start: 20161101
  12. SINGULAIR [Concomitant]
     Active Substance: MONTELUKAST SODIUM
     Dosage: 10 MG, 1X/DAY
     Dates: start: 20161101
  13. COMPAZINE /00013302/ [Concomitant]
     Active Substance: PROCHLORPERAZINE EDISYLATE
     Dosage: 10 MG, AS NEEDED (1 TABLET EVERY 6 HOURS)
     Dates: start: 20161101
  14. VITAMIN D3 [Concomitant]
     Active Substance: CHOLECALCIFEROL
     Dosage: 1000 IU, 1X/DAY
     Dates: start: 20161101
  15. DOCUSATE SODIUM. [Concomitant]
     Active Substance: DOCUSATE SODIUM
     Dosage: UNK, 2X/DAY (2 X A DAY)
     Dates: start: 20161101
  16. TYLENOL [Concomitant]
     Active Substance: ACETAMINOPHEN
     Dosage: 1000 MG, AS NEEDED (2 TABLETS EVERY 3-4 HOURS)
     Dates: start: 20161101
  17. CALTRATE 600+D [Concomitant]
     Dosage: UNK, 2X/DAY
     Dates: start: 20161101
  18. METOPROLOL SUCCINATE. [Concomitant]
     Active Substance: METOPROLOL SUCCINATE
     Dosage: 25 MG, DAILY (1 TABLET)
     Dates: start: 20161101
  19. METHOTREXATE. [Concomitant]
     Active Substance: METHOTREXATE
     Dosage: 10 MG, WEEKLY (2.5MG.-4 TABLETS)
     Dates: start: 20161101
  20. VENTOLIN [Concomitant]
     Active Substance: ALBUTEROL SULFATE
     Dosage: UNK, AS NEEDED
     Route: 055
     Dates: start: 20161101

REACTIONS (1)
  - Hand fracture [Unknown]
